FAERS Safety Report 18514618 (Version 2)
Quarter: 2021Q1

REPORT INFORMATION
  Report Type: Spontaneous
  Country: JP (occurrence: JP)
  Receive Date: 20201117
  Receipt Date: 20210125
  Transmission Date: 20210419
  Serious: Yes (Hospitalization, Disabling, Other)
  Sender: FDA-Public Use
  Company Number: JP-009507513-2009JPN003118J

PATIENT
  Age: 60 Year
  Sex: Female
  Weight: 43 kg

DRUGS (4)
  1. PANVITAN [Concomitant]
     Active Substance: VITAMINS
     Dosage: UNK
     Route: 065
  2. CISPLATIN. [Concomitant]
     Active Substance: CISPLATIN
     Indication: LUNG ADENOCARCINOMA STAGE IV
     Dosage: 115 MILLIGRAM
     Route: 041
     Dates: start: 20190806, end: 20190806
  3. KEYTRUDA [Suspect]
     Active Substance: PEMBROLIZUMAB
     Indication: LUNG ADENOCARCINOMA STAGE IV
     Dosage: 200 MILLIGRAM, Q3W
     Route: 041
     Dates: start: 20190806, end: 20200625
  4. PEMETREXED DISODIUM [Concomitant]
     Active Substance: PEMETREXED DISODIUM
     Indication: LUNG ADENOCARCINOMA STAGE IV
     Dosage: 775 GRAM
     Route: 041
     Dates: start: 20190806, end: 20190806

REACTIONS (3)
  - Malignant neoplasm progression [Unknown]
  - Diabetic ketosis [Not Recovered/Not Resolved]
  - Type 1 diabetes mellitus [Not Recovered/Not Resolved]

NARRATIVE: CASE EVENT DATE: 20200711
